FAERS Safety Report 6134960-8 (Version None)
Quarter: 2009Q1

REPORT INFORMATION
  Report Type: 
  Country: None (occurrence: None)
  Receive Date: 20090325
  Receipt Date: 20090308
  Transmission Date: 20090719
  Serious: Yes (Other)
  Sender: FDA-Public Use
  Company Number: 2006S1006895

PATIENT
  Age: 67 Year
  Sex: Female
  Weight: 59.8748 kg

DRUGS (6)
  1. PHOSPHOSODA GINGER LEMON [Suspect]
     Indication: COLONOSCOPY
     Dosage: 90 ML; TOTAL; PO
     Route: 048
     Dates: start: 20030304, end: 20030304
  2. DIOVAN  /01319601/ [Concomitant]
  3. PRILOSEC [Concomitant]
  4. LEVOTHROID [Concomitant]
  5. TYLENOL W/ CODEINE NO. 3 [Concomitant]
  6. ZANTAC /00550802/ [Concomitant]

REACTIONS (15)
  - ANAEMIA [None]
  - DECREASED ACTIVITY [None]
  - DEPRESSION [None]
  - DIZZINESS [None]
  - DYSGEUSIA [None]
  - EMOTIONAL DISTRESS [None]
  - FATIGUE [None]
  - GAIT DISTURBANCE [None]
  - MEMORY IMPAIRMENT [None]
  - MYALGIA [None]
  - NAUSEA [None]
  - PRURITUS [None]
  - RASH [None]
  - RENAL FAILURE CHRONIC [None]
  - THINKING ABNORMAL [None]
